FAERS Safety Report 10234924 (Version 1)
Quarter: 2014Q2

REPORT INFORMATION
  Report Type: Spontaneous
  Country: BR (occurrence: BR)
  Receive Date: 20140613
  Receipt Date: 20140613
  Transmission Date: 20141212
  Serious: Yes (Other)
  Sender: FDA-Public Use
  Company Number: BR-ASTRAZENECA-2014SE39965

PATIENT
  Age: 48 Year
  Sex: Female
  Weight: 72 kg

DRUGS (8)
  1. ATACAND HCT [Suspect]
     Indication: HYPERTENSION
     Dosage: 16/12.5MG, DAILY
     Route: 048
     Dates: start: 2010, end: 20140527
  2. ATACAND HCT [Suspect]
     Indication: HYPERTENSION
     Dosage: 16/12.5MG, HALF TABLET DAILY
     Route: 048
     Dates: start: 20140528
  3. CLINFAR [Concomitant]
     Indication: BLOOD CHOLESTEROL INCREASED
     Route: 048
     Dates: start: 2011
  4. EUTHYROX [Concomitant]
     Route: 048
     Dates: start: 2004
  5. STILNOX [Concomitant]
     Indication: SLEEP DISORDER
     Route: 048
     Dates: start: 2010
  6. LEXAPRO [Concomitant]
     Route: 048
     Dates: start: 2001
  7. OLCADIL [Concomitant]
     Route: 048
     Dates: start: 2001
  8. TOPIRAMATE [Concomitant]
     Indication: WEIGHT INCREASED
     Route: 048
     Dates: start: 2010

REACTIONS (5)
  - Epistaxis [Recovered/Resolved]
  - Blood cholesterol increased [Recovering/Resolving]
  - Hypertension [Recovered/Resolved]
  - Dizziness [Recovered/Resolved]
  - Drug dose omission [Not Recovered/Not Resolved]
